FAERS Safety Report 7490712-8 (Version None)
Quarter: 2011Q2

REPORT INFORMATION
  Report Type: 
  Country: None (occurrence: None)
  Receive Date: 20110517
  Receipt Date: 20110517
  Transmission Date: 20111010
  Serious: Yes (Other)
  Sender: FDA-Public Use
  Company Number: None

PATIENT
  Age: 72 Year
  Sex: Female
  Weight: 100.6985 kg

DRUGS (1)
  1. ALPRAZOLAM [Suspect]
     Indication: ANXIETY
     Dosage: 1 TWICE A DAY PO
     Route: 048
     Dates: start: 20101229, end: 20110202

REACTIONS (4)
  - TREMOR [None]
  - INSOMNIA [None]
  - IRRITABILITY [None]
  - HEADACHE [None]
